FAERS Safety Report 13598061 (Version 2)
Quarter: 2017Q2

REPORT INFORMATION
  Report Type: Spontaneous
  Country: US (occurrence: US)
  Receive Date: 20170531
  Receipt Date: 20170615
  Transmission Date: 20170830
  Serious: Yes (Other)
  Sender: FDA-Public Use
  Company Number: US-PFIZER INC-2017234385

PATIENT
  Age: 92 Year
  Sex: Female

DRUGS (5)
  1. MIRTAZAPINE. [Concomitant]
     Active Substance: MIRTAZAPINE
     Indication: DEPRESSION
     Dosage: 45 MG, DAILY, AT BED TIME
     Route: 048
  2. IRBESARTAN. [Concomitant]
     Active Substance: IRBESARTAN
     Indication: BLOOD PRESSURE ABNORMAL
     Dosage: 1X/DAY
  3. EFFEXOR XR [Suspect]
     Active Substance: VENLAFAXINE HYDROCHLORIDE
     Indication: MAJOR DEPRESSION
     Dosage: 225 MG, 1X/DAY
     Route: 048
     Dates: start: 2001
  4. METOPROLOL. [Concomitant]
     Active Substance: METOPROLOL
     Dosage: ONE TABLET AT DAY TIME AND HALF AT NIGHT
  5. QUETIAPINE. [Concomitant]
     Active Substance: QUETIAPINE
     Indication: DEPRESSION
     Dosage: AT NIGHT, DAILY
     Route: 048

REACTIONS (4)
  - Abulia [Unknown]
  - Dementia [Unknown]
  - Repetitive speech [Unknown]
  - Disturbance in attention [Unknown]
